FAERS Safety Report 10179802 (Version 1)
Quarter: 2014Q2

REPORT INFORMATION
  Report Type: Spontaneous
  Country: US (occurrence: US)
  Receive Date: 20140519
  Receipt Date: 20140519
  Transmission Date: 20141212
  Serious: No
  Sender: FDA-Public Use
  Company Number: US-AMGEN INC.-USASP2013071132

PATIENT
  Age: 71 Year
  Sex: Female

DRUGS (2)
  1. PROLIA [Suspect]
     Indication: OSTEOPOROSIS POSTMENOPAUSAL
     Dosage: UNK
     Route: 065
  2. B12                                /00056201/ [Concomitant]
     Indication: PERNICIOUS ANAEMIA
     Route: 065

REACTIONS (9)
  - Skin lesion [Unknown]
  - Lip swelling [Unknown]
  - Pain [Unknown]
  - Amnesia [Unknown]
  - Feeling abnormal [Unknown]
  - Dermatitis [Unknown]
  - Skin infection [Unknown]
  - Urticaria [Unknown]
  - Rash [Unknown]
